FAERS Safety Report 21658331 (Version 1)
Quarter: 2022Q4

REPORT INFORMATION
  Report Type: Spontaneous
  Country: US (occurrence: None)
  Receive Date: 20221128
  Receipt Date: 20221128
  Transmission Date: 20230112
  Serious: Yes (Death)
  Sender: FDA-Public Use
  Company Number: None

PATIENT
  Age: 76 Year
  Sex: Male

DRUGS (1)
  1. WARFARIN [Suspect]
     Active Substance: WARFARIN

REACTIONS (7)
  - Colectomy [None]
  - Abdominal pain upper [None]
  - Pulmonary embolism [None]
  - Haematochezia [None]
  - Hypotension [None]
  - Haemoglobin decreased [None]
  - Palliative care [None]

NARRATIVE: CASE EVENT DATE: 20220702
